FAERS Safety Report 17203090 (Version 1)
Quarter: 2019Q4

REPORT INFORMATION
  Report Type: Spontaneous
  Country: DE (occurrence: DE)
  Receive Date: 20191226
  Receipt Date: 20191226
  Transmission Date: 20200122
  Serious: Yes (Hospitalization, Other)
  Sender: FDA-Public Use
  Company Number: DE-MYLANLABS-2019M1126379

PATIENT
  Age: 44 Year
  Sex: Female

DRUGS (3)
  1. ARIPIPRAZOLE. [Suspect]
     Active Substance: ARIPIPRAZOLE
     Indication: PRODUCT USED FOR UNKNOWN INDICATION
     Dosage: UNK
     Route: 065
  2. ABILIFY MAINTENA [Suspect]
     Active Substance: ARIPIPRAZOLE
     Indication: SCHIZOPHRENIA
     Dosage: 400 MILLIGRAM, QD (400 MG, EVERY 4 WEEKS)
     Route: 065
     Dates: start: 20180619, end: 20180621
  3. ABILIFY MAINTENA [Suspect]
     Active Substance: ARIPIPRAZOLE
     Dosage: 300 MILLIGRAM, QD (300 MG, SINGLE)
     Route: 065
     Dates: start: 20180621, end: 20180621

REACTIONS (9)
  - Refusal of treatment by patient [Unknown]
  - Muscle spasms [Unknown]
  - Adverse event [Unknown]
  - Drug level decreased [Unknown]
  - Prescribed underdose [Unknown]
  - Polydipsia [Unknown]
  - Disturbance in attention [Recovered/Resolved]
  - Blood sodium decreased [Recovering/Resolving]
  - Seizure [Unknown]

NARRATIVE: CASE EVENT DATE: 20180621
